FAERS Safety Report 15775697 (Version 1)
Quarter: 2018Q4

REPORT INFORMATION
  Report Type: Spontaneous
  Country: US (occurrence: US)
  Receive Date: 20181231
  Receipt Date: 20181231
  Transmission Date: 20190205
  Serious: No
  Sender: FDA-Public Use
  Company Number: US-DRREDDYS-USA/USA/18/0096478

PATIENT
  Sex: Female
  Weight: 61 kg

DRUGS (2)
  1. XANAX [Concomitant]
     Active Substance: ALPRAZOLAM
     Indication: PRODUCT USED FOR UNKNOWN INDICATION
     Route: 065
  2. NICOTINE. [Suspect]
     Active Substance: NICOTINE
     Indication: SMOKING CESSATION THERAPY
     Route: 062
     Dates: start: 20180206, end: 20180215

REACTIONS (9)
  - Adverse event [Unknown]
  - Weight increased [Unknown]
  - Nicotine dependence [Recovered/Resolved]
  - Product complaint [Unknown]
  - Panic reaction [Unknown]
  - Drug ineffective [Unknown]
  - Fatigue [Recovered/Resolved]
  - Increased appetite [Recovered/Resolved]
  - Somnolence [Not Recovered/Not Resolved]
